FAERS Safety Report 18227028 (Version 1)
Quarter: 2020Q3

REPORT INFORMATION
  Report Type: Spontaneous
  Country: CA (occurrence: CA)
  Receive Date: 20200903
  Receipt Date: 20200903
  Transmission Date: 20201103
  Serious: Yes (Other)
  Sender: FDA-Public Use
  Company Number: CA-PFIZER INC-2020339294

PATIENT
  Age: 35 Year
  Sex: Male

DRUGS (2)
  1. DOXORUBICIN HCL [Suspect]
     Active Substance: DOXORUBICIN HYDROCHLORIDE
     Indication: SPINDLE CELL SARCOMA
     Dosage: UNK
  2. IFEX [Suspect]
     Active Substance: IFOSFAMIDE
     Indication: SPINDLE CELL SARCOMA
     Dosage: UNK

REACTIONS (1)
  - Encephalopathy [Unknown]
